FAERS Safety Report 15110542 (Version 1)
Quarter: 2018Q3

REPORT INFORMATION
  Report Type: Spontaneous
  Country: PT (occurrence: PT)
  Receive Date: 20180705
  Receipt Date: 20180705
  Transmission Date: 20181010
  Serious: Yes (Life-Threatening)
  Sender: FDA-Public Use
  Company Number: PT-PFIZER INC-2018271467

PATIENT
  Age: 71 Year
  Sex: Female
  Weight: 75 kg

DRUGS (6)
  1. ALPRAZOLAM. [Concomitant]
     Active Substance: ALPRAZOLAM
     Dosage: UNK
  2. GINKGO BILOBA [Concomitant]
     Active Substance: GINKGO
     Dosage: UNK
  3. AAS [Concomitant]
     Active Substance: ASPIRIN
     Dosage: UNK
  4. BETAHISTINE [Concomitant]
     Active Substance: BETAHISTINE
     Dosage: UNK
  5. RAMIPRIL. [Suspect]
     Active Substance: RAMIPRIL
     Indication: HYPERTENSION
     Dosage: 5 MG, 1X/DAY (AO DEITAR, SE TA BAIXAR TOMA METADE)
     Route: 048
     Dates: start: 20160817, end: 20170202
  6. CYCLO 3 [Concomitant]
     Active Substance: HESPERIDIN METHYLCHALCONE
     Dosage: UNK

REACTIONS (1)
  - Face oedema [Recovered/Resolved]
